FAERS Safety Report 9936045 (Version 1)
Quarter: 2014Q1

REPORT INFORMATION
  Report Type: Spontaneous
  Country: IN (occurrence: IN)
  Receive Date: 20140228
  Receipt Date: 20140228
  Transmission Date: 20141002
  Serious: Yes (Death, Other)
  Sender: FDA-Public Use
  Company Number: PHHY2014IN025123

PATIENT
  Age: 55 Year
  Sex: Male

DRUGS (3)
  1. CICLOSPORIN [Suspect]
  2. PREDNISOLONE [Suspect]
  3. AZATHIOPRINE [Suspect]

REACTIONS (7)
  - Death [Fatal]
  - Acidosis [Unknown]
  - Hypoventilation [Unknown]
  - Post transplant lymphoproliferative disorder [Unknown]
  - T-cell lymphoma [Unknown]
  - Pyrexia [Unknown]
  - Renal mass [Unknown]
